FAERS Safety Report 4618885-2 (Version None)
Quarter: 2005Q1

REPORT INFORMATION
  Report Type: 
  Country: None (occurrence: None)
  Receive Date: 20050323
  Receipt Date: 20041221
  Transmission Date: 20050727
  Serious: Yes (Hospitalization)
  Sender: FDA-Public Use
  Company Number: 2004219900US

PATIENT
  Age: 71 Year
  Sex: Male

DRUGS (8)
  1. CELECOXIB [Suspect]
     Indication: DEMENTIA ALZHEIMER'S TYPE
     Dates: start: 20040220
  2. ASPIRIN [Concomitant]
  3. METOPROLOL TARTRATE [Concomitant]
  4. ATORVASTATIN (ATORVASTATIN) [Concomitant]
  5. MULTIVITAMINS (ASCORBIC ACID, ERGOCALCIFEROL, FOLIC ACID, NICOTINAMIDE [Concomitant]
  6. ASCORBIC ACID [Concomitant]
  7. TOCOPHEROL (TOCOPHEROL) [Concomitant]
  8. DOXAZOSIN (DOXAZOSIN) [Concomitant]

REACTIONS (2)
  - AORTIC ANEURYSM [None]
  - PERIPHERAL ARTERY ANEURYSM [None]
